FAERS Safety Report 8471075-8 (Version None)
Quarter: 2012Q2

REPORT INFORMATION
  Report Type: 
  Country: None (occurrence: None)
  Receive Date: 20120621
  Receipt Date: 20120605
  Transmission Date: 20120825
  Serious: Yes (Death, Other)
  Sender: FDA-Public Use
  Company Number: FK201201633

PATIENT
  Age: 55 Year
  Sex: Female

DRUGS (3)
  1. METHOTREXATE [Suspect]
     Indication: GRAFT VERSUS HOST DISEASE
  2. CYCLOSPORINE [Suspect]
     Indication: GRAFT VERSUS HOST DISEASE
  3. ANTI-THYMOCYTE GLOBULIN NOS [Suspect]
     Indication: GRAFT VERSUS HOST DISEASE

REACTIONS (9)
  - FEBRILE NEUTROPENIA [None]
  - PLEURAL EFFUSION [None]
  - LUNG NEOPLASM [None]
  - BACK PAIN [None]
  - ZYGOMYCOSIS [None]
  - PULMONARY FUNCTION TEST ABNORMAL [None]
  - LUNG INFECTION [None]
  - THROMBOCYTOPENIA [None]
  - PNEUMOTHORAX [None]
